FAERS Safety Report 8183883-1 (Version None)
Quarter: 2012Q1

REPORT INFORMATION
  Report Type: 
  Country: None (occurrence: None)
  Receive Date: 20120305
  Receipt Date: 20120301
  Transmission Date: 20120608
  Serious: Yes (Hospitalization, Other)
  Sender: FDA-Public Use
  Company Number: US-PFIZER INC-2012055994

PATIENT
  Sex: Male
  Weight: 102 kg

DRUGS (8)
  1. ISOSORBIDE [Concomitant]
     Dosage: 30 MG, UNK
  2. TIKOSYN [Suspect]
     Indication: CARDIAC DISORDER
     Dosage: 500 UG, 2X/DAY
     Route: 048
     Dates: start: 20110301
  3. REVATIO [Concomitant]
     Dosage: UNK
  4. PLAVIX [Concomitant]
     Dosage: 75 MG, UNK
  5. LASIX [Concomitant]
     Dosage: 40 MG, UNK
  6. AMBIEN [Concomitant]
     Dosage: UNK
  7. METOPROLOL [Concomitant]
     Dosage: 25 MG, UNK
  8. WARFARIN [Concomitant]
     Dosage: 5 MG, UNK

REACTIONS (2)
  - PNEUMONIA [None]
  - PULMONARY HYPERTENSION [None]
